FAERS Safety Report 5214483-0 (Version None)
Quarter: 2006Q4

REPORT INFORMATION
  Report Type: 
  Country: None (occurrence: None)
  Receive Date: 20061107
  Receipt Date: 20060811
  Transmission Date: 20070319
  Serious: No
  Sender: FDA-Public Use
  Company Number: 200614992BWH

PATIENT
  Sex: Male

DRUGS (3)
  1. LEVITRA [Suspect]
     Dosage: SEE IMAGE
     Route: 048
  2. HIGH BLOOD PRESSURE MEDICATION [Concomitant]
  3. MEDICATION FOR CHOLESTEROL [Concomitant]

REACTIONS (1)
  - DRUG INEFFECTIVE [None]
